FAERS Safety Report 17638329 (Version 1)
Quarter: 2020Q2

REPORT INFORMATION
  Report Type: Report from Study
  Country: CN (occurrence: CN)
  Receive Date: 20200407
  Receipt Date: 20200407
  Transmission Date: 20200713
  Serious: Yes (Other)
  Sender: FDA-Public Use
  Company Number: CN-ROCHE-2576114

PATIENT

DRUGS (2)
  1. GEMCITABINE. [Suspect]
     Active Substance: GEMCITABINE
     Indication: BILE DUCT CANCER
     Dosage: EVERY  3 WEEKS AS ONCE CYCLE, ON D1 AND D8
     Route: 042
  2. CAPECITABINE. [Suspect]
     Active Substance: CAPECITABINE
     Indication: BILE DUCT CANCER
     Dosage: EVERY 3 WEEKS AS ONE CYCLE, ON DAY1-DAY 14
     Route: 048

REACTIONS (16)
  - Gastrointestinal disorder [Unknown]
  - Stomatitis [Unknown]
  - Palmar-plantar erythrodysaesthesia syndrome [Unknown]
  - Neutrophil count decreased [Unknown]
  - Platelet count decreased [Unknown]
  - Aspartate aminotransferase increased [Unknown]
  - Asthenia [Unknown]
  - Blood alkaline phosphatase increased [Unknown]
  - Off label use [Unknown]
  - Intentional product use issue [Unknown]
  - White blood cell count decreased [Unknown]
  - Decreased appetite [Unknown]
  - Dizziness [Unknown]
  - Alanine aminotransferase increased [Unknown]
  - Pyrexia [Unknown]
  - Haemoglobin decreased [Unknown]
